FAERS Safety Report 16154169 (Version 1)
Quarter: 2019Q2

REPORT INFORMATION
  Report Type: Spontaneous
  Country: GR (occurrence: GR)
  Receive Date: 20190403
  Receipt Date: 20190403
  Transmission Date: 20190711
  Serious: Yes (Hospitalization, Other)
  Sender: FDA-Public Use
  Company Number: GR-ALLERGAN-1905213US

PATIENT
  Sex: Female

DRUGS (1)
  1. MESALAZINE UNK [Suspect]
     Active Substance: MESALAMINE
     Indication: COLITIS ULCERATIVE
     Dosage: 4 G, QD
     Route: 065

REACTIONS (3)
  - Myocarditis [Recovering/Resolving]
  - Decreased appetite [Recovering/Resolving]
  - Dehydration [Recovering/Resolving]
